FAERS Safety Report 5416743-7 (Version None)
Quarter: 2007Q3

REPORT INFORMATION
  Report Type: 
  Country: None (occurrence: None)
  Receive Date: 20070816
  Receipt Date: 20070806
  Transmission Date: 20080115
  Serious: Yes (Other)
  Sender: FDA-Public Use
  Company Number: B0483466A

PATIENT
  Age: 31 Year
  Sex: Female
  Weight: 60 kg

DRUGS (5)
  1. BECLOMETHASONE DIPROPIONATE [Suspect]
     Indication: ASTHMA
     Route: 055
     Dates: start: 20070629
  2. SALBUTAMOL [Suspect]
     Indication: ASTHMA
     Route: 055
     Dates: start: 20070629
  3. BECLOMETHASONE DIPROPIONATE [Concomitant]
     Route: 045
     Dates: start: 20070613
  4. CETIRIZINE HCL [Concomitant]
     Route: 048
     Dates: start: 20070613
  5. SODIUM CROMOGLYCATE [Concomitant]
     Route: 047

REACTIONS (3)
  - ANGIOEDEMA [None]
  - PARAESTHESIA ORAL [None]
  - URTICARIA [None]
